FAERS Safety Report 9409533 (Version 1)
Quarter: 2013Q3

REPORT INFORMATION
  Report Type: Spontaneous
  Country: US (occurrence: US)
  Receive Date: 20130719
  Receipt Date: 20130719
  Transmission Date: 20140515
  Serious: Yes (Life-Threatening, Hospitalization, Other)
  Sender: FDA-Public Use
  Company Number: US-JNJFOC-20130706869

PATIENT
  Sex: Female

DRUGS (3)
  1. DOXORUBICIN [Suspect]
     Indication: BREAST CANCER
     Dosage: FOR 4 CYCLES
     Route: 042
  2. CYCLOPHOSPHAMIDE [Suspect]
     Indication: BREAST CANCER
     Dosage: FOR 4 CYCLES
     Route: 065
  3. PACLITAXEL [Suspect]
     Indication: BREAST CANCER
     Dosage: FOR 4CYCLES
     Route: 065

REACTIONS (41)
  - Hyponatraemia [Unknown]
  - Hyponatraemia [Unknown]
  - Diarrhoea [Unknown]
  - Depression [Unknown]
  - Infection [Unknown]
  - Embolism [Unknown]
  - Blood creatinine increased [Unknown]
  - Hypersensitivity [Unknown]
  - Thrombosis [Unknown]
  - Embolism [Unknown]
  - Leukopenia [Unknown]
  - Febrile neutropenia [Unknown]
  - Neutropenia [Unknown]
  - Neutropenia [Unknown]
  - Pneumonitis [Unknown]
  - Thrombocytopenia [Unknown]
  - Peripheral sensory neuropathy [Unknown]
  - Mucosal inflammation [Unknown]
  - Anaemia [Unknown]
  - Leukopenia [Unknown]
  - Anaemia [Unknown]
  - Fatigue [Unknown]
  - Syncope [Unknown]
  - Dyspnoea [Unknown]
  - Pain [Unknown]
  - Hypertension [Unknown]
  - Chest pain [Unknown]
  - Nausea [Unknown]
  - Rash [Unknown]
  - Hyperglycaemia [Unknown]
  - Hypokalaemia [Unknown]
  - Myocardial ischaemia [Unknown]
  - Confusional state [Unknown]
  - Myopathy [Unknown]
  - Sinus tachycardia [Unknown]
  - Fracture [Unknown]
  - Dysphagia [Unknown]
  - Cerebral ischaemia [Unknown]
  - Dyspnoea [Unknown]
  - Thrombosis [Unknown]
  - Dizziness [Unknown]
